FAERS Safety Report 12653886 (Version 1)
Quarter: 2016Q3

REPORT INFORMATION
  Report Type: Spontaneous
  Country: US (occurrence: US)
  Receive Date: 20160816
  Receipt Date: 20160816
  Transmission Date: 20161109
  Serious: No
  Sender: FDA-Public Use
  Company Number: US-AMGEN-USASP2016104992

PATIENT
  Age: 31 Year
  Sex: Female

DRUGS (6)
  1. ARMOUR THYROID [Concomitant]
     Active Substance: THYROID, PORCINE
     Dosage: UNK
  2. ENSKYCE [Concomitant]
     Active Substance: DESOGESTREL\ETHINYL ESTRADIOL
     Dosage: UNK
  3. ENBREL [Suspect]
     Active Substance: ETANERCEPT
     Indication: RHEUMATOID ARTHRITIS
     Dosage: 50 MG, WEEKLY
     Route: 058
     Dates: start: 201606
  4. ASA [Concomitant]
     Active Substance: ASPIRIN
     Dosage: UNK
  5. TRAMADOL. [Concomitant]
     Active Substance: TRAMADOL
     Dosage: UNK
  6. PRENATAL MULTIVITAMIN + DHA [Concomitant]
     Dosage: UNK

REACTIONS (4)
  - Migraine [Unknown]
  - Headache [Unknown]
  - Drug effect incomplete [Unknown]
  - Injection site rash [Unknown]

NARRATIVE: CASE EVENT DATE: 2016
